FAERS Safety Report 10064447 (Version 1)
Quarter: 2014Q2

REPORT INFORMATION
  Report Type: Spontaneous
  Country: US (occurrence: None)
  Receive Date: 20140407
  Receipt Date: 20140407
  Transmission Date: 20141212
  Serious: Yes (Other)
  Sender: FDA-Public Use
  Company Number: None

PATIENT
  Age: 57 Year
  Sex: Female
  Weight: 71 kg

DRUGS (1)
  1. ALFA INTERFERON 2B [Suspect]
     Dates: end: 20140221

REACTIONS (2)
  - Overdose [None]
  - Aspartate aminotransferase increased [None]
